FAERS Safety Report 5296843-5 (Version None)
Quarter: 2007Q2

REPORT INFORMATION
  Report Type: 
  Country: None (occurrence: None)
  Receive Date: 20070413
  Receipt Date: 20070404
  Transmission Date: 20071010
  Serious: Yes (Other)
  Sender: FDA-Public Use
  Company Number: JP-PFIZER INC-2007027661

PATIENT
  Age: 40 Year
  Sex: Female

DRUGS (2)
  1. MEDROL [Suspect]
     Indication: ASTHMA
     Dosage: DAILY DOSE:20MG
     Route: 048
  2. RINDERON [Suspect]
     Indication: ASTHMA
     Dosage: DAILY DOSE:2MG
     Route: 048

REACTIONS (2)
  - CHORIORETINOPATHY [None]
  - DRUG THERAPY CHANGED [None]
